FAERS Safety Report 7875000-X (Version None)
Quarter: 2011Q4

REPORT INFORMATION
  Report Type: 
  Country: None (occurrence: None)
  Receive Date: 20111031
  Receipt Date: 20100415
  Transmission Date: 20120403
  Serious: No
  Sender: FDA-Public Use
  Company Number: US-BAYER-201020296NA

PATIENT
  Age: 76 Year
  Sex: Female

DRUGS (4)
  1. AVELOX [Suspect]
     Indication: DIARRHOEA
     Dosage: 400 MG, QD
     Dates: start: 20100322
  2. THEOPHYLLINE [Concomitant]
  3. METFORMIN HCL [Concomitant]
  4. VITAMIN D [Concomitant]

REACTIONS (7)
  - ASTHENIA [None]
  - DYSPHAGIA [None]
  - DIARRHOEA [None]
  - WEIGHT DECREASED [None]
  - OROPHARYNGEAL PAIN [None]
  - NAUSEA [None]
  - DEHYDRATION [None]
